FAERS Safety Report 5005423-8 (Version None)
Quarter: 2006Q2

REPORT INFORMATION
  Report Type: 
  Country: None (occurrence: None)
  Receive Date: 20060518
  Receipt Date: 20050930
  Transmission Date: 20061013
  Serious: Yes (Hospitalization, Disabling)
  Sender: FDA-Public Use
  Company Number: US-MERCK-0510USA01497

PATIENT
  Age: 35 Year
  Sex: Female
  Weight: 145 kg

DRUGS (7)
  1. VIOXX [Suspect]
     Indication: JOINT INJURY
     Route: 048
     Dates: start: 20030701, end: 20040901
  2. CELEBREX [Suspect]
     Indication: JOINT INJURY
     Route: 048
     Dates: start: 20030701, end: 20040901
  3. BEXTRA [Suspect]
     Indication: JOINT INJURY
     Route: 048
     Dates: start: 20030701, end: 20050401
  4. CLONIDINE [Concomitant]
     Indication: HYPERTENSION
     Route: 048
     Dates: start: 20000101
  5. LORTAB [Concomitant]
     Indication: PAIN
     Route: 048
     Dates: start: 20030423, end: 20041001
  6. ULTRACET [Concomitant]
     Indication: PAIN
     Route: 048
     Dates: start: 20030501
  7. FERROUS SULFATE TAB [Concomitant]
     Indication: IRON DEFICIENCY
     Route: 048
     Dates: start: 20000101

REACTIONS (4)
  - BLOOD CHOLESTEROL INCREASED [None]
  - DEEP VEIN THROMBOSIS [None]
  - PULMONARY EMBOLISM [None]
  - TRANSIENT ISCHAEMIC ATTACK [None]
